FAERS Safety Report 6391462-1 (Version None)
Quarter: 2009Q4

REPORT INFORMATION
  Report Type: 
  Country: None (occurrence: None)
  Receive Date: 20091007
  Receipt Date: 20091001
  Transmission Date: 20100525
  Serious: Yes (Hospitalization)
  Sender: FDA-Public Use
  Company Number: US-BRISTOL-MYERS SQUIBB COMPANY-14375695

PATIENT
  Age: 55 Year
  Sex: Female
  Weight: 48 kg

DRUGS (7)
  1. ERBITUX [Suspect]
     Indication: ANAL CANCER
     Dosage: STARTED ON: 14-JUL-2008
     Dates: start: 20081006, end: 20081006
  2. CISPLATIN [Suspect]
     Indication: ANAL CANCER
     Dosage: STARTED ON: 14-JUL-2008
     Dates: start: 20081006, end: 20081006
  3. FLUOROURACIL [Suspect]
     Indication: ANAL CANCER
     Dosage: STARTED ON: 14JUL08-10OCT09
     Dates: start: 20081006, end: 20081006
  4. RADIATION THERAPY [Suspect]
     Indication: ANAL CANCER
     Dosage: 1 DOSAGE FORM = 4320 CGY STARTED ON: 14-JUL-2008 NO OF FRACTIONS:24 NUMBER OF ELAPSED DAYS:32
     Dates: start: 20081010, end: 20081010
  5. MAGNESIUM OXIDE [Concomitant]
  6. MEVACOR [Concomitant]
  7. NEXIUM [Concomitant]

REACTIONS (9)
  - DECREASED APPETITE [None]
  - DEHYDRATION [None]
  - DIARRHOEA [None]
  - DIZZINESS [None]
  - FATIGUE [None]
  - LYMPHOPENIA [None]
  - MUSCULAR WEAKNESS [None]
  - NAUSEA [None]
  - PAIN [None]
